FAERS Safety Report 9407496 (Version 2)
Quarter: 2013Q3

REPORT INFORMATION
  Report Type: Spontaneous
  Country: US (occurrence: US)
  Receive Date: 20130718
  Receipt Date: 20130806
  Transmission Date: 20140515
  Serious: No
  Sender: FDA-Public Use
  Company Number: US-BAYER-2013-087311

PATIENT
  Age: 89 Year
  Sex: Female
  Weight: 49.89 kg

DRUGS (13)
  1. ALEVE CAPLET [Suspect]
     Indication: SCIATICA
     Dosage: 1 DF, UNK
     Route: 048
     Dates: start: 20130628
  2. HYDROCHLOROTHIAZIDE [Concomitant]
  3. METOPROLOL [Concomitant]
  4. PREDNISONE [Concomitant]
  5. SIMVASTATIN [Concomitant]
  6. FOLIC ACID [Concomitant]
  7. FERROUS SULFATE [Concomitant]
  8. FAMOTIDINE [Concomitant]
  9. ECOTRIN [Concomitant]
  10. CENTRUM SILVER [Concomitant]
  11. OMEGA 3 FISH OIL [Concomitant]
  12. VITAMIN D3 [Concomitant]
  13. PROBIOTICS [Concomitant]

REACTIONS (3)
  - Drug effect delayed [None]
  - Incorrect drug administration duration [None]
  - Wrong technique in drug usage process [None]
